FAERS Safety Report 8287550-5 (Version None)
Quarter: 2012Q2

REPORT INFORMATION
  Report Type: 
  Country: None (occurrence: None)
  Receive Date: 20120416
  Receipt Date: 20120402
  Transmission Date: 20120825
  Serious: Yes (Other)
  Sender: FDA-Public Use
  Company Number: PHHY2012US027793

PATIENT

DRUGS (2)
  1. ALISKIREN [Suspect]
     Dosage: 75 MG
     Route: 048
  2. NEORAL [Suspect]
     Dosage: 6 DF

REACTIONS (8)
  - SOMNOLENCE [None]
  - DIZZINESS [None]
  - NERVOUSNESS [None]
  - NAUSEA [None]
  - DRUG INTERACTION [None]
  - HEADACHE [None]
  - VOMITING [None]
  - HOT FLUSH [None]
